FAERS Safety Report 4310249-4 (Version None)
Quarter: 2004Q1

REPORT INFORMATION
  Report Type: 
  Country: None (occurrence: None)
  Receive Date: 20040301
  Receipt Date: 20040301
  Transmission Date: 20041129
  Serious: Yes (Other)
  Sender: FDA-Public Use
  Company Number: None

PATIENT
  Age: 47 Year
  Sex: Female
  Weight: 80.7403 kg

DRUGS (2)
  1. VIOXX [Suspect]
     Indication: PAIN
     Dosage: 12.5 MG 1-2 TIMES ORAL
     Route: 048
     Dates: start: 20040217, end: 20040227
  2. DIAMOX [Concomitant]

REACTIONS (1)
  - HEART RATE INCREASED [None]
